FAERS Safety Report 7592568-1 (Version None)
Quarter: 2011Q3

REPORT INFORMATION
  Report Type: 
  Country: None (occurrence: None)
  Receive Date: 20110706
  Receipt Date: 20110630
  Transmission Date: 20111222
  Serious: Yes (Other)
  Sender: FDA-Public Use
  Company Number: JP-SANOFI-AVENTIS-2011SA041860

PATIENT
  Age: 77 Year
  Sex: Female
  Weight: 42 kg

DRUGS (12)
  1. HEPARIN SODIUM [Concomitant]
     Route: 042
     Dates: start: 20090605, end: 20090605
  2. HEPARIN SODIUM [Concomitant]
     Dosage: 300-500 IU/HR, CONTINUOUSLY
     Route: 041
     Dates: start: 20090605, end: 20090606
  3. LOSARTAN POTASSIUM [Concomitant]
     Route: 048
     Dates: start: 20090605
  4. CRESTOR [Concomitant]
     Indication: HYPERLIPIDAEMIA
     Route: 048
     Dates: start: 20090606
  5. ASPIRIN [Concomitant]
     Route: 048
     Dates: start: 20090605
  6. SIGMART [Concomitant]
     Dosage: 2 MG/HR, CONTINUOUSLY
     Route: 041
     Dates: start: 20090605, end: 20090606
  7. CARVEDILOL [Concomitant]
     Route: 048
     Dates: start: 20090606, end: 20090611
  8. CARVEDILOL [Concomitant]
     Route: 048
     Dates: start: 20090612
  9. PLAVIX [Suspect]
     Route: 048
     Dates: start: 20090606
  10. SIGMART [Concomitant]
     Route: 048
     Dates: start: 20090606
  11. PLAVIX [Suspect]
     Route: 048
     Dates: start: 20090605, end: 20090605
  12. LANSOPRAZOLE [Concomitant]
     Indication: PROPHYLAXIS AGAINST GASTROINTESTINAL ULCER
     Route: 048
     Dates: start: 20090605

REACTIONS (1)
  - ANAEMIA [None]
